FAERS Safety Report 23399113 (Version 2)
Quarter: 2025Q4

REPORT INFORMATION
  Report Type: Report from Study
  Country: KR (occurrence: KR)
  Receive Date: 20240113
  Receipt Date: 20251201
  Transmission Date: 20260117
  Serious: Yes (Death, Hospitalization, Other)
  Sender: ABBVIE
  Company Number: KR-ABBVIE-5574978

PATIENT
  Age: 81 Year
  Sex: Male
  Weight: 47 kg

DRUGS (15)
  1. VENCLEXTA [Suspect]
     Active Substance: VENETOCLAX
     Indication: Acute myeloid leukaemia
     Dosage: VENCLEXTA 100MG
     Route: 048
     Dates: start: 20231211, end: 20240103
  2. Tiropamin [Concomitant]
     Indication: Diarrhoea
     Dosage: TIME INTERVAL: 0.33333333 DAYS
     Dates: start: 20231212, end: 20231216
  3. Anfrade sr [Concomitant]
     Indication: Vascular disorder prophylaxis
     Dosage: FORM STRENGTH: 300 MG
     Dates: start: 20231208, end: 20240103
  4. Yuhan dexamethasone [Concomitant]
     Indication: COVID-19
     Dates: start: 20231216, end: 20231217
  5. PROPACETAMOL HYDROCHLORIDE [Concomitant]
     Active Substance: PROPACETAMOL HYDROCHLORIDE
     Indication: Acute myeloid leukaemia
     Dates: start: 20231211, end: 20231215
  6. Levoplus [Concomitant]
     Indication: Infection prophylaxis
     Dosage: FORM STRENGTH: 750 MG
     Dates: start: 20231216, end: 20240103
  7. CHOLINE ALFOSCERATE [Concomitant]
     Active Substance: CHOLINE ALFOSCERATE
     Indication: Prophylaxis
     Dosage: SC
     Dates: start: 20231208, end: 20231216
  8. VEKLURY [Concomitant]
     Active Substance: REMDESIVIR
     Indication: COVID-19
     Dosage: INJ CONCENTRATE FOR SOLUTION FOR INFUSION
     Route: 042
     Dates: start: 20231215, end: 20231216
  9. VEKLURY [Concomitant]
     Active Substance: REMDESIVIR
     Indication: COVID-19
     Dosage: INJ CONCENTRATE FOR SOLUTION FOR INFUSION
     Route: 042
     Dates: start: 20231214, end: 20231214
  10. Esomezol [Concomitant]
     Indication: Gastritis prophylaxis
     Dosage: FORM STRENGTH: 20 MG
     Dates: start: 20231216, end: 20231217
  11. PIPERACILLIN SODIUM\TAZOBACTAM SODIUM [Concomitant]
     Active Substance: PIPERACILLIN SODIUM\TAZOBACTAM SODIUM
     Indication: COVID-19
     Dosage: FORM STRENGTH: 4.5 GRAMS
     Route: 042
     Dates: start: 20231217, end: 20231217
  12. PIPERACILLIN SODIUM\TAZOBACTAM SODIUM [Concomitant]
     Active Substance: PIPERACILLIN SODIUM\TAZOBACTAM SODIUM
     Indication: COVID-19
     Dosage: TIME INTERVAL: 0.33333333 DAYS: FORM STRENGTH: 4.5 GRAMS
     Route: 042
     Dates: start: 20231216, end: 20231216
  13. PIPERACILLIN SODIUM\TAZOBACTAM SODIUM [Concomitant]
     Active Substance: PIPERACILLIN SODIUM\TAZOBACTAM SODIUM
     Indication: COVID-19
     Dosage: FORM STRENGTH: 4.5 GRAMS
     Route: 042
     Dates: start: 20231215, end: 20231215
  14. COZAAR [Concomitant]
     Active Substance: LOSARTAN POTASSIUM
     Indication: Hypertension
     Dates: start: 20231208, end: 20231216
  15. Dexamethasone daewon [Concomitant]
     Indication: COVID-19
     Dates: start: 20231214, end: 20231216

REACTIONS (2)
  - Sepsis [Fatal]
  - Pancytopenia [Fatal]

NARRATIVE: CASE EVENT DATE: 20240103
